FAERS Safety Report 4281797-0 (Version None)
Quarter: 2004Q1

REPORT INFORMATION
  Report Type: 
  Country: None (occurrence: None)
  Receive Date: 20040128
  Receipt Date: 20040114
  Transmission Date: 20041129
  Serious: Yes (Death, Hospitalization)
  Sender: FDA-Public Use
  Company Number: US063543

PATIENT
  Age: 80 Year
  Sex: Male

DRUGS (9)
  1. NEULASTA [Suspect]
     Indication: CHEMOTHERAPY
     Dosage: 6 MG, SC
     Route: 058
     Dates: start: 20031024
  2. CHORAMBUCIL [Concomitant]
  3. VINBLASTINE [Concomitant]
  4. PREDNISONE [Concomitant]
  5. ALLOPURINOL [Concomitant]
  6. ACETYLSALICYLIC ACID SRT [Concomitant]
  7. ATENOLOL [Concomitant]
  8. DIGOXIN [Concomitant]
  9. ARANESP [Concomitant]

REACTIONS (6)
  - ANAEMIA [None]
  - CARDIAC FAILURE CONGESTIVE [None]
  - DRUG INEFFECTIVE [None]
  - LEUKOPENIA [None]
  - NEUTROPENIA [None]
  - PNEUMONIA [None]
